FAERS Safety Report 7073137-9 (Version None)
Quarter: 2010Q4

REPORT INFORMATION
  Report Type: 
  Country: None (occurrence: None)
  Receive Date: 20101029
  Receipt Date: 20100511
  Transmission Date: 20110411
  Serious: No
  Sender: FDA-Public Use
  Company Number: A0857313A

PATIENT
  Age: 85 Year
  Sex: Female

DRUGS (16)
  1. ADVAIR DISKUS 100/50 [Suspect]
     Indication: ASTHMA
     Dosage: 1PUFF TWICE PER DAY
     Route: 055
     Dates: start: 20050401
  2. STEROID [Suspect]
     Dates: start: 20090101, end: 20100401
  3. ATENOLOL [Concomitant]
  4. LISINOPRIL [Concomitant]
  5. INSULIN [Concomitant]
  6. GLUCOPHAGE [Concomitant]
  7. BUMEX [Concomitant]
  8. PREDNISONE [Concomitant]
  9. POTASSIUM CHLORIDE [Concomitant]
  10. CHLORHEXIDINE GLUCONATE [Concomitant]
  11. IMODIUM [Concomitant]
  12. CHOLESTYRAMINE [Concomitant]
  13. MULTI-VITAMIN [Concomitant]
  14. SINGULAIR [Concomitant]
  15. SIMVASTATIN [Concomitant]
  16. NYSTATIN [Concomitant]

REACTIONS (2)
  - CANDIDIASIS [None]
  - IMMUNE SYSTEM DISORDER [None]
